FAERS Safety Report 12901902 (Version 1)
Quarter: 2016Q4

REPORT INFORMATION
  Report Type: Spontaneous
  Country: US (occurrence: US)
  Receive Date: 20161102
  Receipt Date: 20161102
  Transmission Date: 20170207
  Serious: No
  Sender: FDA-Public Use
  Company Number: US-ACTAVIS-2016-15697

PATIENT
  Age: 72 Year
  Sex: Male

DRUGS (2)
  1. CARBIDOPA/LEVODOPA (AELLC) [Suspect]
     Active Substance: CARBIDOPA\LEVODOPA
     Dosage: 3.5 TABLETS, 4 TIMES DAILY PLUS 2 MORE AT MIDNIGHT
     Route: 048
  2. CARBIDOPA/LEVODOPA (AELLC) [Suspect]
     Active Substance: CARBIDOPA\LEVODOPA
     Indication: PARKINSON^S DISEASE
     Dosage: 4 TABLETS, 5 TIMES DAILY PLUS 2 MORE AT MIDNIGHT
     Route: 048

REACTIONS (1)
  - Drug ineffective [Unknown]
